FAERS Safety Report 6239240-8 (Version None)
Quarter: 2009Q2

REPORT INFORMATION
  Report Type: 
  Country: None (occurrence: None)
  Receive Date: 20090622
  Receipt Date: 20090619
  Transmission Date: 20091009
  Serious: Yes (Death)
  Sender: FDA-Public Use
  Company Number: DE-WYE-G03024609

PATIENT
  Age: 68 Year
  Sex: Male
  Weight: 71 kg

DRUGS (22)
  1. TYGACIL [Suspect]
     Indication: ABDOMINAL INFECTION
     Route: 042
     Dates: start: 20081029, end: 20081029
  2. TYGACIL [Suspect]
     Route: 042
     Dates: start: 20081030, end: 20081106
  3. CELLCEPT [Concomitant]
  4. PROGRAF [Concomitant]
  5. URBASON [Concomitant]
  6. DECORTIN [Concomitant]
  7. NOREPINEPHRINE BITARTRATE [Concomitant]
  8. CORDARONE [Concomitant]
  9. DOBUTAMINE HCL [Concomitant]
  10. LANICOR [Concomitant]
  11. PANTOZOL [Concomitant]
  12. TORSEMIDE [Concomitant]
  13. LASIX [Concomitant]
  14. INSULIN [Concomitant]
  15. MERONEM [Concomitant]
     Route: 042
     Dates: start: 20081020, end: 20081029
  16. TAZOBAC [Concomitant]
     Route: 042
     Dates: start: 20081026, end: 20081029
  17. FLUCONAZOLE [Concomitant]
     Route: 042
     Dates: start: 20081028, end: 20081029
  18. FLUCONAZOLE [Concomitant]
     Route: 042
     Dates: start: 20081102, end: 20081112
  19. MAXIPIME [Concomitant]
     Route: 042
     Dates: start: 20081030, end: 20081030
  20. ERYCINUM [Concomitant]
     Route: 042
     Dates: start: 20081102, end: 20081114
  21. CYMEVENE [Concomitant]
     Dosage: 50MG 1-2 TIMES PER DAY
     Route: 042
     Dates: start: 20081029, end: 20081110
  22. KONAKION [Concomitant]

REACTIONS (4)
  - DRUG INEFFECTIVE [None]
  - MULTI-ORGAN FAILURE [None]
  - PERITONITIS [None]
  - SEPTIC SHOCK [None]
